FAERS Safety Report 5637805-5 (Version None)
Quarter: 2008Q1

REPORT INFORMATION
  Report Type: 
  Country: None (occurrence: None)
  Receive Date: 20080220
  Receipt Date: 20080205
  Transmission Date: 20080703
  Serious: Yes (Death, Hospitalization)
  Sender: FDA-Public Use
  Company Number: M7001-02885-SPO-US

PATIENT
  Age: 70 Year
  Sex: Female
  Weight: 91 kg

DRUGS (7)
  1. TARGRETIN [Suspect]
     Indication: MYCOSIS FUNGOIDES
     Dosage: 300 MG, 4 IN 1 D, ORAL
     Route: 048
     Dates: start: 20070920, end: 20071105
  2. METOPROLOL TARTRATE [Concomitant]
  3. COZAAR [Concomitant]
  4. NAMENDA [Concomitant]
  5. LYRICA [Concomitant]
  6. LASIX [Concomitant]
  7. ARICEPT [Concomitant]

REACTIONS (3)
  - ASTHENIA [None]
  - OEDEMA PERIPHERAL [None]
  - PULMONARY OEDEMA [None]
